FAERS Safety Report 20044001 (Version 1)
Quarter: 2021Q4

REPORT INFORMATION
  Report Type: Spontaneous
  Country: US (occurrence: None)
  Receive Date: 20211108
  Receipt Date: 20211108
  Transmission Date: 20220303
  Serious: Yes (Death, Hospitalization)
  Sender: FDA-Public Use
  Company Number: US-MDD US Operations-MDD202110-002233

PATIENT
  Age: 67 Year
  Sex: Female

DRUGS (1)
  1. APOKYN [Suspect]
     Active Substance: APOMORPHINE HYDROCHLORIDE
     Indication: Product used for unknown indication
     Dosage: NOT PROVIDED
     Dates: start: 2005, end: 20210927

REACTIONS (3)
  - Pre-existing disease [Fatal]
  - Condition aggravated [Fatal]
  - Hospitalisation [Unknown]

NARRATIVE: CASE EVENT DATE: 20211001
